FAERS Safety Report 5704919-0 (Version None)
Quarter: 2008Q2

REPORT INFORMATION
  Report Type: 
  Country: None (occurrence: None)
  Receive Date: 20080414
  Receipt Date: 20080318
  Transmission Date: 20081010
  Serious: No
  Sender: FDA-Public Use
  Company Number: US-BOEHRINGER INGELHEIM GMBH, GERMANY-2008-BP-02908BP

PATIENT
  Sex: Female

DRUGS (16)
  1. SPIRIVA [Suspect]
     Indication: CHRONIC OBSTRUCTIVE PULMONARY DISEASE
     Dates: start: 20040713
  2. CARTIA XT [Concomitant]
  3. BENICAR [Concomitant]
  4. DITROPAN XL [Concomitant]
  5. SIMVASTATIN [Concomitant]
  6. EFFEXOR XR [Concomitant]
  7. SINGULAIR [Concomitant]
  8. OMEPRAZOLE [Concomitant]
  9. MICRO-K [Concomitant]
  10. ADVAIR DISC [Concomitant]
  11. LASIX [Concomitant]
  12. PREMARIN [Concomitant]
  13. UNIPHYL [Concomitant]
  14. OXYGEN [Concomitant]
  15. NASONEX [Concomitant]
  16. ASTELYN [Concomitant]

REACTIONS (2)
  - GLAUCOMA [None]
  - INTRAOCULAR PRESSURE INCREASED [None]
